FAERS Safety Report 7781933-5 (Version None)
Quarter: 2011Q3

REPORT INFORMATION
  Report Type: 
  Country: None (occurrence: None)
  Receive Date: 20110927
  Receipt Date: 20110329
  Transmission Date: 20111222
  Serious: No
  Sender: FDA-Public Use
  Company Number: US-BAYER-2011-027568

PATIENT
  Age: 48 Year
  Sex: Female

DRUGS (3)
  1. ULTRAVIST 150 [Suspect]
     Indication: COMPUTERISED TOMOGRAM
     Dosage: 100 ML, ONCE
     Route: 042
     Dates: start: 20110329, end: 20110329
  2. METFORMIN HCL [Concomitant]
  3. ULTRAVIST 150 [Suspect]
     Indication: LOCAL SWELLING

REACTIONS (2)
  - PRURITUS [None]
  - URTICARIA [None]
